FAERS Safety Report 13642106 (Version 1)
Quarter: 2017Q2

REPORT INFORMATION
  Report Type: Spontaneous
  Country: US (occurrence: US)
  Receive Date: 20170610
  Receipt Date: 20170610
  Transmission Date: 20170830
  Serious: Yes (Hospitalization)
  Sender: FDA-Public Use
  Company Number: None

PATIENT
  Age: 62 Year
  Sex: Female

DRUGS (4)
  1. ASA [Concomitant]
     Active Substance: ASPIRIN
  2. PROCRIT [Suspect]
     Active Substance: ERYTHROPOIETIN
     Route: 058
     Dates: start: 20161121
  3. VITAMIN D [Concomitant]
     Active Substance: CHOLECALCIFEROL
  4. IPRATROPIUM/ALBUTEROL [Concomitant]
     Active Substance: ALBUTEROL\IPRATROPIUM

REACTIONS (1)
  - Hospitalisation [None]
